FAERS Safety Report 9931267 (Version 2)
Quarter: 2014Q2

REPORT INFORMATION
  Report Type: Spontaneous
  Country: NL (occurrence: NL)
  Receive Date: 20140228
  Receipt Date: 20140403
  Transmission Date: 20141212
  Serious: Yes (Hospitalization)
  Sender: FDA-Public Use
  Company Number: NL-AMGEN-NLDSP2014013084

PATIENT
  Age: 53 Year
  Sex: Female

DRUGS (3)
  1. XGEVA [Suspect]
     Indication: PRODUCT USED FOR UNKNOWN INDICATION
     Dosage: 120 MG, Q4WK
     Route: 058
     Dates: start: 20131227
  2. XELODA [Concomitant]
     Dosage: UNK
     Dates: end: 201401
  3. CALCI CHEW D3 [Concomitant]

REACTIONS (4)
  - Pulmonary embolism [Unknown]
  - Pyrexia [Unknown]
  - Pneumonia [Unknown]
  - Pain in extremity [Recovered/Resolved]
